FAERS Safety Report 4900905-9 (Version None)
Quarter: 2006Q1

REPORT INFORMATION
  Report Type: 
  Country: None (occurrence: None)
  Receive Date: 20060201
  Receipt Date: 20060118
  Transmission Date: 20060701
  Serious: Yes (Hospitalization)
  Sender: FDA-Public Use
  Company Number: GXKR2006ES00562

PATIENT
  Age: 19 Year
  Sex: Female

DRUGS (2)
  1. LORATADINE+PSEUDOEPHEDRINE [Suspect]
     Indication: INFLUENZA LIKE ILLNESS
     Dosage: ORAL
     Route: 048
  2. LORATADINE [Suspect]
     Indication: ALLERGY TEST
     Dosage: 10 MG, ONCE/SINGLE, ORAL
     Route: 048

REACTIONS (2)
  - DRUG ERUPTION [None]
  - SKIN HYPERPIGMENTATION [None]
